FAERS Safety Report 11972432 (Version 1)
Quarter: 2016Q1

REPORT INFORMATION
  Report Type: Spontaneous
  Country: US (occurrence: US)
  Receive Date: 20160128
  Receipt Date: 20160128
  Transmission Date: 20160526
  Serious: No
  Sender: FDA-Public Use
  Company Number: US-GLAXOSMITHKLINE-US2016007774

PATIENT
  Sex: Male

DRUGS (4)
  1. VALIUM [Concomitant]
     Active Substance: DIAZEPAM
  2. VENTOLIN HFA [Suspect]
     Active Substance: ALBUTEROL SULFATE
     Indication: CHRONIC OBSTRUCTIVE PULMONARY DISEASE
     Dosage: 2 PUFF(S), BID
     Route: 055
     Dates: start: 201506
  3. TRAMADOL. [Concomitant]
     Active Substance: TRAMADOL
  4. NORCO [Suspect]
     Active Substance: ACETAMINOPHEN\HYDROCODONE BITARTRATE
     Indication: PAIN

REACTIONS (9)
  - Physical disability [Unknown]
  - Weight decreased [Unknown]
  - Chronic obstructive pulmonary disease [Recovered/Resolved]
  - Diarrhoea [Recovered/Resolved]
  - Viral infection [Recovered/Resolved]
  - Foot fracture [Recovering/Resolving]
  - Pain [Recovering/Resolving]
  - Vomiting [Recovered/Resolved]
  - Fall [Unknown]
